FAERS Safety Report 12858298 (Version 2)
Quarter: 2016Q4

REPORT INFORMATION
  Report Type: Spontaneous
  Country: US (occurrence: US)
  Receive Date: 20161018
  Receipt Date: 20161107
  Transmission Date: 20170207
  Serious: No
  Sender: FDA-Public Use
  Company Number: US-ASTRAZENECA-2016SF08003

PATIENT
  Sex: Female

DRUGS (1)
  1. SYMBICORT [Suspect]
     Active Substance: BUDESONIDE\FORMOTEROL FUMARATE DIHYDRATE
     Dosage: DOSE: 2 PUFFS, FREQUENCY: TWO TIMES A DAY
     Route: 055

REACTIONS (4)
  - Device malfunction [Unknown]
  - Cardiac disorder [Unknown]
  - Constipation [Unknown]
  - Intentional product misuse [Unknown]
